FAERS Safety Report 12639603 (Version 1)
Quarter: 2016Q3

REPORT INFORMATION
  Report Type: Spontaneous
  Country: US (occurrence: None)
  Receive Date: 20160809
  Receipt Date: 20160809
  Transmission Date: 20161109
  Serious: No
  Sender: FDA-Public Use
  Company Number: None

PATIENT
  Age: 68 Year
  Sex: Female

DRUGS (12)
  1. PROPRANOLOL [Concomitant]
     Active Substance: PROPRANOLOL\PROPRANOLOL HYDROCHLORIDE
  2. LISINOPRIL. [Concomitant]
     Active Substance: LISINOPRIL
  3. LORADINE [Concomitant]
  4. LEVOTHYROXINE. [Concomitant]
     Active Substance: LEVOTHYROXINE
  5. GABAPENTIN. [Suspect]
     Active Substance: GABAPENTIN
     Indication: MIGRAINE
     Dosage: 10MG THEN 30 DAILY ...BY MOUTH
     Route: 048
     Dates: start: 20160609, end: 20160717
  6. LIDOCAINE. [Concomitant]
     Active Substance: LIDOCAINE
  7. SIMVSTATIN [Concomitant]
  8. MULTIVIT [Concomitant]
     Active Substance: VITAMINS
  9. CLOBETASOL SOLUTION [Concomitant]
  10. LINZESS [Concomitant]
     Active Substance: LINACLOTIDE
  11. TRIAMCINOLONE [Concomitant]
     Active Substance: TRIAMCINOLONE
  12. CENTRUM [Concomitant]
     Active Substance: VITAMINS

REACTIONS (3)
  - Drug ineffective [None]
  - Unevaluable event [None]
  - Pruritus [None]

NARRATIVE: CASE EVENT DATE: 20160615
